FAERS Safety Report 8770874 (Version 4)
Quarter: 2014Q4

REPORT INFORMATION
  Report Type: Spontaneous
  Country: US (occurrence: US)
  Receive Date: 20120906
  Receipt Date: 20141212
  Transmission Date: 20150529
  Serious: Yes (Hospitalization, Disabling, Other)
  Sender: FDA-Public Use
  Company Number: US-009507513-1209USA001027

PATIENT
  Sex: Male
  Weight: 80.73 kg

DRUGS (1)
  1. PROPECIA [Suspect]
     Active Substance: FINASTERIDE
     Indication: ANDROGENETIC ALOPECIA
     Dosage: 1 MG TABLET DAILY
     Route: 048
     Dates: start: 20050621, end: 20100116

REACTIONS (25)
  - Thinking abnormal [Not Recovered/Not Resolved]
  - Depression [Not Recovered/Not Resolved]
  - Adverse drug reaction [Unknown]
  - Inguinal hernia [Unknown]
  - Cerebral disorder [Unknown]
  - Complex partial seizures [Recovering/Resolving]
  - Cognitive disorder [Not Recovered/Not Resolved]
  - Erectile dysfunction [Not Recovered/Not Resolved]
  - Emotional distress [Not Recovered/Not Resolved]
  - Sexual dysfunction [Not Recovered/Not Resolved]
  - Ejaculation disorder [Not Recovered/Not Resolved]
  - Memory impairment [Unknown]
  - Anxiety [Not Recovered/Not Resolved]
  - Dyslipidaemia [Unknown]
  - Reproductive tract disorder [Not Recovered/Not Resolved]
  - Epilepsy [Not Recovered/Not Resolved]
  - Drug intolerance [Unknown]
  - Inguinal hernia repair [Unknown]
  - Vitamin D deficiency [Unknown]
  - Anxiety [Unknown]
  - Abnormal dreams [Unknown]
  - Irritability [Unknown]
  - Ejaculation failure [Not Recovered/Not Resolved]
  - Amnesia [Unknown]
  - Sinusitis [Unknown]

NARRATIVE: CASE EVENT DATE: 2007
